FAERS Safety Report 6996803-X (Version None)
Quarter: 2010Q3

REPORT INFORMATION
  Report Type: 
  Country: None (occurrence: None)
  Receive Date: 20100918
  Receipt Date: 20090901
  Transmission Date: 20110219
  Serious: No
  Sender: FDA-Public Use
  Company Number: US-WYE-H10122509

PATIENT
  Age: 49 Year
  Sex: Female

DRUGS (2)
  1. PRISTIQ [Suspect]
     Indication: ANXIETY
     Route: 048
     Dates: start: 20090201, end: 20090601
  2. PRISTIQ [Suspect]
     Route: 048
     Dates: start: 20090601, end: 20090101

REACTIONS (4)
  - DIZZINESS [None]
  - DRUG WITHDRAWAL SYNDROME [None]
  - JOINT RANGE OF MOTION DECREASED [None]
  - NAUSEA [None]
